FAERS Safety Report 25741276 (Version 2)
Quarter: 2025Q3

REPORT INFORMATION
  Report Type: Report from Study
  Country: US (occurrence: US)
  Receive Date: 20250829
  Receipt Date: 20250909
  Transmission Date: 20251021
  Serious: Yes (Hospitalization)
  Sender: IPSEN BIOPHARMACEUTICALS, INC.
  Company Number: US-IPSEN Group, Research and Development-2025-20780

PATIENT
  Age: 5 Year
  Sex: Male

DRUGS (3)
  1. BYLVAY [Suspect]
     Active Substance: ODEVIXIBAT
     Indication: Progressive familial intrahepatic cholestasis
     Route: 048
     Dates: start: 20230307
  2. BYLVAY [Suspect]
     Active Substance: ODEVIXIBAT
     Indication: Biliary obstruction
     Dosage: SPRINKLE AND MIX THE CONTENTS OF 1 CAP (1200) MCG WITH FOOD AND ADMINISTER BY MOUTH EVERY DAY FOR OBSTRUCTIVE BILE DUCT
     Route: 048
     Dates: start: 20241227
  3. BYLVAY [Suspect]
     Active Substance: ODEVIXIBAT
     Indication: Off label use

REACTIONS (2)
  - Liver transplant [Unknown]
  - Off label use [Unknown]

NARRATIVE: CASE EVENT DATE: 20241227
